FAERS Safety Report 7873721 (Version 2)
Quarter: 2014Q2

REPORT INFORMATION
  Report Type: Report from Study
  Country: US (occurrence: US)
  Receive Date: 20110328
  Receipt Date: 20140421
  Transmission Date: 20141212
  Serious: Yes (Hospitalization)
  Sender: FDA-Public Use
  Company Number: US-ACTELION-A-US2011-46311

PATIENT
  Age: 65 Year
  Sex: Female

DRUGS (5)
  1. TRACLEER [Suspect]
     Indication: PULMONARY ARTERIAL HYPERTENSION
     Dosage: UNK
     Route: 048
     Dates: start: 20100618
  2. TRACLEER [Suspect]
     Dosage: 1 TAB IN AM, 1/2 TAB IN PM
     Route: 048
  3. COUMADIN [Concomitant]
  4. PLAVIX [Concomitant]
  5. BUMEX [Concomitant]

REACTIONS (7)
  - Cardiac pacemaker insertion [Unknown]
  - Tricuspid valve repair [Unknown]
  - Atrial fibrillation [Unknown]
  - Pleural effusion [Unknown]
  - Aspiration pleural cavity [Unknown]
  - Weight decreased [Unknown]
  - Fluid retention [Unknown]
